FAERS Safety Report 7214100-4 (Version None)
Quarter: 2010Q4

REPORT INFORMATION
  Report Type: 
  Country: None (occurrence: None)
  Receive Date: 20101126
  Receipt Date: 20100319
  Transmission Date: 20110411
  Serious: Yes (Other)
  Sender: FDA-Public Use
  Company Number: WAES 1003USA03104

PATIENT
  Age: 78 Year
  Sex: Female
  Weight: 52.1637 kg

DRUGS (6)
  1. FOSAMAX [Suspect]
     Indication: OSTEOPENIA
     Dosage: 70 MG/WKY/PO
     Route: 048
     Dates: start: 20031011, end: 20080701
  2. FOSAMAX [Suspect]
     Indication: OSTEOPOROSIS
     Dosage: 70 MG/WKY/PO
     Route: 048
     Dates: start: 20031011, end: 20080701
  3. FOSAMAX [Suspect]
     Indication: OSTEOPOROSIS
     Dosage: PO
     Route: 048
     Dates: start: 20080708, end: 20080902
  4. FOSAMAX PLUS D [Suspect]
     Indication: OSTEOPOROSIS
     Dosage: 70MG/2800 IU/WKY/PO
     Route: 048
     Dates: start: 20071226, end: 20080722
  5. LEVOTHYROXINE SODIUM [Concomitant]
  6. NORTRIPTYLINE [Concomitant]

REACTIONS (31)
  - ALOPECIA [None]
  - AMNESIA [None]
  - ARTHRALGIA [None]
  - CELLULITIS [None]
  - CHOLELITHIASIS [None]
  - DENTAL CARIES [None]
  - DIVERTICULITIS [None]
  - DYSPEPSIA [None]
  - FACET JOINT SYNDROME [None]
  - FALL [None]
  - GALLOP RHYTHM PRESENT [None]
  - GINGIVAL PAIN [None]
  - HIATUS HERNIA [None]
  - IMMUNE SYSTEM DISORDER [None]
  - INFLUENZA [None]
  - INTERVERTEBRAL DISC SPACE NARROWING [None]
  - JAW DISORDER [None]
  - NASOPHARYNGITIS [None]
  - NERVE ROOT LESION [None]
  - ORAL DISCOMFORT [None]
  - OSTEONECROSIS OF JAW [None]
  - PAIN [None]
  - PERIARTHRITIS [None]
  - PERIODONTITIS [None]
  - PSORIASIS [None]
  - SCOLIOSIS [None]
  - SNORING [None]
  - SPINAL COLUMN STENOSIS [None]
  - SPONDYLOLISTHESIS [None]
  - TOOTH INFECTION [None]
  - WEIGHT DECREASED [None]
